FAERS Safety Report 5677471-6 (Version None)
Quarter: 2008Q1

REPORT INFORMATION
  Report Type: 
  Country: None (occurrence: None)
  Receive Date: 20080324
  Receipt Date: 20080314
  Transmission Date: 20080703
  Serious: Yes (Other)
  Sender: FDA-Public Use
  Company Number: US-PFIZER INC-2008023939

PATIENT
  Sex: Male
  Weight: 120.2 kg

DRUGS (6)
  1. LIPITOR [Suspect]
     Indication: BLOOD CHOLESTEROL
  2. ALLOPURINOL [Concomitant]
  3. LEVOTHYROXINE SODIUM [Concomitant]
  4. GEMFIBROZIL [Concomitant]
  5. LISINOPRIL [Concomitant]
  6. METFORMIN [Concomitant]

REACTIONS (4)
  - BLOOD TRIGLYCERIDES INCREASED [None]
  - DIABETES MELLITUS [None]
  - HYPERTENSION [None]
  - PERIPHERAL VASCULAR DISORDER [None]
